FAERS Safety Report 6987240-2 (Version None)
Quarter: 2010Q3

REPORT INFORMATION
  Report Type: 
  Country: None (occurrence: None)
  Receive Date: 20100827
  Receipt Date: 20100212
  Transmission Date: 20110219
  Serious: Yes (Life-Threatening, Hospitalization)
  Sender: FDA-Public Use
  Company Number: AMAG201000087

PATIENT
  Age: 81 Year
  Sex: Male
  Weight: 66 kg

DRUGS (13)
  1. FERAHEME [Suspect]
     Indication: IRON DEFICIENCY ANAEMIA
     Dosage: 60 MG (2 CC), SINGLE, INTRAVENOUS
     Route: 042
     Dates: start: 20100212, end: 20100212
  2. PRESERVISION LUTEIN EYE VITA.@MIN.SUP.SOFTG. (ASCORBIC ACID, CUPRIC OX [Concomitant]
  3. COZAAR [Concomitant]
  4. COREG [Concomitant]
  5. LIPITOR [Concomitant]
  6. NEPHROCAPS (ASCORBIC ACID, BIOTIN, CYANOCOBALAMIN, FOLIC ACID, NICOTIN [Concomitant]
  7. SENSIPAR (CINACALET HYDROCHLORIDE) [Concomitant]
  8. BUMEX [Concomitant]
  9. TUMS (CALCIUM CARBONATE, MAGNESIUM CARBONATE, MAGNESIUM TRISILICATE) [Concomitant]
  10. CLARITIN [Concomitant]
  11. RENVELA [Concomitant]
  12. ASPIRIN [Concomitant]
  13. AMLODIPINE [Concomitant]

REACTIONS (2)
  - ANAPHYLACTIC REACTION [None]
  - CHEST PAIN [None]
